FAERS Safety Report 22601845 (Version 6)
Quarter: 2024Q1

REPORT INFORMATION
  Report Type: Report from Study
  Country: US (occurrence: US)
  Receive Date: 20230614
  Receipt Date: 20240118
  Transmission Date: 20240409
  Serious: Yes (Hospitalization, Other)
  Sender: FDA-Public Use
  Company Number: US-JAZZ PHARMACEUTICALS-2023-US-012671

PATIENT
  Sex: Female

DRUGS (6)
  1. XYREM [Suspect]
     Active Substance: SODIUM OXYBATE
     Indication: Somnolence
     Dosage: 4.5 GRAM, BID
  2. XYREM [Suspect]
     Active Substance: SODIUM OXYBATE
     Indication: Narcolepsy
  3. XYREM [Suspect]
     Active Substance: SODIUM OXYBATE
     Indication: Cataplexy
  4. MIRAPEX [Concomitant]
     Active Substance: PRAMIPEXOLE DIHYDROCHLORIDE
     Indication: Product used for unknown indication
     Dosage: UNK
     Dates: start: 20151024
  5. VALIUM [Concomitant]
     Active Substance: DIAZEPAM
     Indication: Product used for unknown indication
     Dosage: UNK
     Dates: start: 20151024
  6. LIDODERM [Concomitant]
     Active Substance: LIDOCAINE
     Indication: Product used for unknown indication
     Dosage: UNK
     Dates: start: 20060101

REACTIONS (22)
  - Surgery [Unknown]
  - Hypokalaemia [Unknown]
  - Pharyngeal haemorrhage [Unknown]
  - Coma [Unknown]
  - Multiple organ dysfunction syndrome [Unknown]
  - Tricuspid valve repair [Unknown]
  - Atrioventricular block [Unknown]
  - Illness [Unknown]
  - Vomiting [Unknown]
  - Feeling abnormal [Unknown]
  - Autonomic nervous system imbalance [Unknown]
  - Dyspnoea [Unknown]
  - Hypertension [Unknown]
  - Arthritis [Unknown]
  - Drug hypersensitivity [Unknown]
  - Somnolence [Unknown]
  - Nausea [Unknown]
  - Gastritis [Unknown]
  - Urticaria [Unknown]
  - Memory impairment [Unknown]
  - Product administration interrupted [Unknown]
  - Off label use [Unknown]
